FAERS Safety Report 5035457-9 (Version None)
Quarter: 2006Q2

REPORT INFORMATION
  Report Type: 
  Country: None (occurrence: None)
  Receive Date: 20060622
  Receipt Date: 20060614
  Transmission Date: 20061013
  Serious: No
  Sender: FDA-Public Use
  Company Number: 06H-087-0308483-00

PATIENT
  Age: 73 Year
  Sex: Male

DRUGS (1)
  1. PRECEDEX [Suspect]
     Dosage: 0.2 - 0.7 MCG/KG/HR, INTRAVENOUS
     Route: 042
     Dates: start: 20060531

REACTIONS (1)
  - CARDIAC TAMPONADE [None]
